FAERS Safety Report 7029523-6 (Version None)
Quarter: 2010Q3

REPORT INFORMATION
  Report Type: 
  Country: None (occurrence: None)
  Receive Date: 20100930
  Receipt Date: 20100916
  Transmission Date: 20110219
  Serious: Yes (Hospitalization)
  Sender: FDA-Public Use
  Company Number: 2010P1001348

PATIENT
  Age: 46 Year
  Sex: Male
  Weight: 99.7913 kg

DRUGS (7)
  1. FENTANYL-25 [Suspect]
     Indication: FALL
     Dosage: 25 MCG/HR;Q3D;TDER
     Route: 062
     Dates: start: 20100801, end: 20100906
  2. FENTANYL-25 [Suspect]
     Indication: PAIN
     Dosage: 25 MCG/HR;Q3D;TDER
     Route: 062
     Dates: start: 20100801, end: 20100906
  3. VICODIN [Suspect]
  4. OXYCODONE (NO PREF. NAME) [Suspect]
  5. MELOXICAM [Suspect]
  6. OXYCONTIN [Concomitant]
  7. PREV MEDS =UNKNOWN [Concomitant]

REACTIONS (2)
  - DYSARTHRIA [None]
  - DYSPNOEA [None]
